FAERS Safety Report 8878834 (Version 2)
Quarter: 2014Q2

REPORT INFORMATION
  Report Type: Report from Study
  Country: US (occurrence: US)
  Receive Date: 20121026
  Receipt Date: 20140513
  Transmission Date: 20141212
  Serious: Yes (Hospitalization, Disabling)
  Sender: FDA-Public Use
  Company Number: US-ROCHE-1145742

PATIENT
  Age: 51 Year
  Sex: Female

DRUGS (6)
  1. PEG-INTERFERON ALFA 2A [Suspect]
     Indication: HEPATITIS C
     Route: 042
     Dates: start: 20110203
  2. RIBAVIRIN [Suspect]
     Indication: HEPATITIS C
     Route: 048
     Dates: start: 20110203
  3. BLINDED DACLATASVIR [Suspect]
     Indication: HEPATITIS C
     Route: 048
     Dates: start: 20110203
  4. IXEL [Concomitant]
     Route: 065
     Dates: start: 2010
  5. HYDROCODONE/ACETAMINOPHEN [Concomitant]
     Route: 065
     Dates: start: 2010
  6. LYRICA [Concomitant]
     Route: 065
     Dates: start: 2010

REACTIONS (2)
  - Confusional state [Unknown]
  - Conversion disorder [Recovered/Resolved]
